FAERS Safety Report 16446012 (Version 1)
Quarter: 2019Q2

REPORT INFORMATION
  Report Type: Spontaneous
  Country: CN (occurrence: CN)
  Receive Date: 20190618
  Receipt Date: 20190618
  Transmission Date: 20190711
  Serious: Yes (Other)
  Sender: FDA-Public Use
  Company Number: CN-PFIZER INC-2019256271

PATIENT
  Age: 25 Year
  Sex: Female
  Weight: 75 kg

DRUGS (2)
  1. METHOTREXATE SODIUM. [Suspect]
     Active Substance: METHOTREXATE SODIUM
     Indication: ECTOPIC PREGNANCY
     Dosage: 92 MG, 1X/DAY
     Route: 030
     Dates: start: 20190521, end: 20190521
  2. METHOTREXATE SODIUM. [Suspect]
     Active Substance: METHOTREXATE SODIUM
     Dosage: 90 MG, 1X/DAY
     Route: 030
     Dates: start: 20190529, end: 20190529

REACTIONS (3)
  - Product use in unapproved indication [Unknown]
  - Liver injury [Recovering/Resolving]
  - Off label use [Unknown]

NARRATIVE: CASE EVENT DATE: 20190601
